FAERS Safety Report 19318317 (Version 2)
Quarter: 2021Q3

REPORT INFORMATION
  Report Type: Spontaneous
  Country: JP (occurrence: JP)
  Receive Date: 20210527
  Receipt Date: 20210709
  Transmission Date: 20211014
  Serious: Yes (Life-Threatening, Hospitalization)
  Sender: FDA-Public Use
  Company Number: JP-IPSEN BIOPHARMACEUTICALS, INC.-2021-13273

PATIENT
  Age: 64 Year
  Sex: Male

DRUGS (4)
  1. SOMATULINE AUTOGEL [Suspect]
     Active Substance: LANREOTIDE ACETATE
     Indication: GASTROENTEROPANCREATIC NEUROENDOCRINE TUMOUR DISEASE
     Route: 058
     Dates: start: 20200522, end: 20200722
  2. EVEROLIMUS. [Suspect]
     Active Substance: EVEROLIMUS
     Indication: GASTROENTEROPANCREATIC NEUROENDOCRINE TUMOUR DISEASE
     Dates: start: 20200424, end: 20200514
  3. EVEROLIMUS. [Suspect]
     Active Substance: EVEROLIMUS
     Dates: start: 20200515, end: 20200611
  4. EVEROLIMUS. [Suspect]
     Active Substance: EVEROLIMUS
     Dates: start: 20200612, end: 20200625

REACTIONS (4)
  - Blood pressure decreased [Recovered/Resolved]
  - Platelet count decreased [Recovered/Resolved]
  - Intra-abdominal haemorrhage [Recovered/Resolved]
  - Malaise [Recovered/Resolved]

NARRATIVE: CASE EVENT DATE: 20200625
